FAERS Safety Report 13572452 (Version 1)
Quarter: 2017Q2

REPORT INFORMATION
  Report Type: Spontaneous
  Country: US (occurrence: US)
  Receive Date: 20170523
  Receipt Date: 20170523
  Transmission Date: 20170830
  Serious: Yes (Other)
  Sender: FDA-Public Use
  Company Number: US-BAYER-2017-090906

PATIENT
  Age: 11 Year
  Sex: Male
  Weight: 52.15 kg

DRUGS (6)
  1. FENNEL. [Concomitant]
     Active Substance: FENNEL
     Dosage: UNK
  2. MIRALAX [Suspect]
     Active Substance: POLYETHYLENE GLYCOL 3350
     Indication: CONSTIPATION
     Route: 065
  3. MIRALAX [Suspect]
     Active Substance: POLYETHYLENE GLYCOL 3350
     Indication: CONSTIPATION
     Dosage: 1 DF
     Dates: start: 201410
  4. MIRALAX [Suspect]
     Active Substance: POLYETHYLENE GLYCOL 3350
     Indication: CONSTIPATION
     Dosage: 7 DF, UNK
  5. PEPPERMINT. [Concomitant]
     Active Substance: PEPPERMINT
     Dosage: UNK
  6. FISH OIL [Concomitant]
     Active Substance: FISH OIL
     Dosage: UNK

REACTIONS (13)
  - Sinusitis [Unknown]
  - Dyskinesia [Unknown]
  - Movement disorder [Unknown]
  - Discomfort [Unknown]
  - Product use issue [Unknown]
  - Head titubation [Unknown]
  - Cough [Unknown]
  - Tic [Unknown]
  - Influenza like illness [Unknown]
  - Inappropriate prescribing [None]
  - Malaise [Unknown]
  - Inappropriate prescribing [Unknown]
  - Underdose [Unknown]

NARRATIVE: CASE EVENT DATE: 201410
